APPROVED DRUG PRODUCT: FENOLDOPAM MESYLATE
Active Ingredient: FENOLDOPAM MESYLATE
Strength: EQ 10MG BASE/ML
Dosage Form/Route: INJECTABLE;INJECTION
Application: A076582 | Product #001
Applicant: HIKMA PHARMACEUTICALS USA INC
Approved: Oct 12, 2004 | RLD: No | RS: No | Type: DISCN